FAERS Safety Report 8193657-3 (Version None)
Quarter: 2012Q1

REPORT INFORMATION
  Report Type: 
  Country: None (occurrence: None)
  Receive Date: 20120308
  Receipt Date: 20120228
  Transmission Date: 20120608
  Serious: Yes (Hospitalization, Other)
  Sender: FDA-Public Use
  Company Number: NL-JNJFOC-20120112656

PATIENT
  Age: 25 Year
  Sex: Male
  Weight: 50 kg

DRUGS (7)
  1. ENTOCORT EC [Concomitant]
     Indication: COLITIS ULCERATIVE
     Dates: end: 20111102
  2. REMICADE [Suspect]
     Indication: COLITIS ULCERATIVE
     Route: 042
     Dates: start: 20110530, end: 20110823
  3. FLUTICASONE PROPIONATE/SALMETEROL [Concomitant]
     Indication: ASTHMA
     Dosage: 50/500 MCG ORAL DAILY
  4. PANTOPRAZOLE [Concomitant]
     Route: 048
  5. REMICADE [Suspect]
     Dosage: INDUCTION THERAPY WITHOUT EFFECT
     Route: 042
     Dates: start: 20070101
  6. CALCIUM CARBONATE [Concomitant]
     Route: 048
  7. LOPERAMIDE HCL [Concomitant]
     Route: 048
     Dates: end: 20110411

REACTIONS (2)
  - POUCHITIS [None]
  - COLITIS ULCERATIVE [None]
